FAERS Safety Report 7271645-9 (Version None)
Quarter: 2011Q1

REPORT INFORMATION
  Report Type: 
  Country: None (occurrence: None)
  Receive Date: 20110203
  Receipt Date: 20110126
  Transmission Date: 20110831
  Serious: Yes (Other)
  Sender: FDA-Public Use
  Company Number: GB-AMGEN-GBRSP2010009940

PATIENT
  Age: 59 Year
  Sex: Female

DRUGS (10)
  1. ATENOLOL [Concomitant]
  2. ARANESP [Suspect]
     Dosage: 100 A?G, UNK
  3. TRAMADOL [Concomitant]
  4. OMEPRAZOLE [Concomitant]
  5. ARANESP [Suspect]
     Dosage: 100 A?G, QWK
     Route: 058
     Dates: start: 20070701, end: 20101201
  6. CALCIDEN [Concomitant]
  7. PREDNISONE [Concomitant]
  8. CANDESARTAN [Concomitant]
  9. CYCLOSPORINE [Concomitant]
  10. ALFACALCIDOL [Concomitant]

REACTIONS (2)
  - APLASIA PURE RED CELL [None]
  - THERAPEUTIC RESPONSE DECREASED [None]
